FAERS Safety Report 23564864 (Version 1)
Quarter: 2024Q1

REPORT INFORMATION
  Report Type: Spontaneous
  Country: US (occurrence: US)
  Receive Date: 20240226
  Receipt Date: 20240226
  Transmission Date: 20240410
  Serious: No
  Sender: FDA-Public Use
  Company Number: US-Kindeva Drug Delivery L.P.-2153674

PATIENT
  Sex: Female

DRUGS (3)
  1. PROVENTIL HFA [Suspect]
     Active Substance: ALBUTEROL SULFATE
     Route: 055
  2. PROVENTIL HFA [Suspect]
     Active Substance: ALBUTEROL SULFATE
  3. ALBUTEROL [Suspect]
     Active Substance: ALBUTEROL
     Route: 055

REACTIONS (2)
  - Nervousness [Unknown]
  - Tremor [Unknown]
